FAERS Safety Report 9667138 (Version 1)
Quarter: 2013Q4

REPORT INFORMATION
  Report Type: Spontaneous
  Country: US (occurrence: US)
  Receive Date: 20131104
  Receipt Date: 20131104
  Transmission Date: 20140711
  Serious: No
  Sender: FDA-Public Use
  Company Number: US-BIOGENIDEC-2013BI090046

PATIENT
  Age: 54 Year
  Sex: Female

DRUGS (11)
  1. TECFIDERA [Suspect]
     Indication: PRODUCT USED FOR UNKNOWN INDICATION
     Dates: start: 20130808, end: 20130904
  2. TECFIDERA [Suspect]
     Indication: PRODUCT USED FOR UNKNOWN INDICATION
     Route: 048
  3. PREDNISONE [Concomitant]
  4. BENAZEPRIL [Concomitant]
  5. ZYRTEC [Concomitant]
  6. MINIVELLE [Concomitant]
  7. OSCAL [Concomitant]
  8. VITAMIN D-3 [Concomitant]
  9. PROTONIX [Concomitant]
  10. VALIUM [Concomitant]
  11. PROLIA [Concomitant]

REACTIONS (3)
  - Hypoaesthesia [Unknown]
  - Rash [Unknown]
  - Pruritus [Unknown]
